FAERS Safety Report 20326394 (Version 9)
Quarter: 2022Q4

REPORT INFORMATION
  Report Type: Report from Study
  Country: US (occurrence: US)
  Receive Date: 20220112
  Receipt Date: 20221220
  Transmission Date: 20230113
  Serious: No
  Sender: FDA-Public Use
  Company Number: US-NOVARTISTESTPH-NVSC2022US005199

PATIENT
  Age: 63 Year
  Sex: Female

DRUGS (1)
  1. KESIMPTA [Suspect]
     Active Substance: OFATUMUMAB
     Indication: Primary progressive multiple sclerosis
     Dosage: 20 MG, QMO
     Route: 058
     Dates: start: 20210922

REACTIONS (4)
  - Rhinorrhoea [Not Recovered/Not Resolved]
  - Headache [Not Recovered/Not Resolved]
  - Urinary tract infection [Unknown]
  - Product dose omission in error [Unknown]

NARRATIVE: CASE EVENT DATE: 20220106
